FAERS Safety Report 8821135 (Version 2)
Quarter: 2015Q3

REPORT INFORMATION
  Report Type: Report from Study
  Country: US (occurrence: US)
  Receive Date: 20121002
  Receipt Date: 20150819
  Transmission Date: 20151125
  Serious: Yes (Death)
  Sender: FDA-Public Use
  Company Number: US-ROCHE-1097757

PATIENT
  Age: 54 Year
  Sex: Male

DRUGS (23)
  1. ADRIAMYCIN [Concomitant]
     Active Substance: DOXORUBICIN HYDROCHLORIDE
     Route: 065
  2. DEXAMETHASONE. [Concomitant]
     Active Substance: DEXAMETHASONE
  3. ZOFRAN [Concomitant]
     Active Substance: ONDANSETRON HYDROCHLORIDE
     Route: 065
  4. ROCEPHIN [Concomitant]
     Active Substance: CEFTRIAXONE SODIUM
     Route: 042
  5. BIAXIN [Concomitant]
     Active Substance: CLARITHROMYCIN
     Route: 065
  6. NEURONTIN [Concomitant]
     Active Substance: GABAPENTIN
     Route: 065
  7. CLARITIN [Concomitant]
     Active Substance: LORATADINE
     Route: 065
  8. RITUXAN [Suspect]
     Active Substance: RITUXIMAB
     Indication: LYMPHOMA
     Dosage: MONTHLY
     Route: 042
     Dates: start: 199812, end: 199901
  9. TYLENOL [Concomitant]
     Active Substance: ACETAMINOPHEN
  10. RITUXAN [Suspect]
     Active Substance: RITUXIMAB
     Dosage: FOR 8 WEEKS
     Route: 042
  11. CIPROFLOXACIN. [Concomitant]
     Active Substance: CIPROFLOXACIN
     Route: 065
  12. IFOSFAMIDE. [Concomitant]
     Active Substance: IFOSFAMIDE
     Route: 065
  13. CYTARABINE. [Concomitant]
     Active Substance: CYTARABINE
  14. RITUXAN [Suspect]
     Active Substance: RITUXIMAB
     Dosage: FOR FIRST WEEK
     Route: 042
  15. VINCRISTIN [Suspect]
     Active Substance: VINCRISTINE
     Indication: PRODUCT USED FOR UNKNOWN INDICATION
     Route: 065
  16. NOVANTRONE [Concomitant]
     Active Substance: MITOXANTRONE HYDROCHLORIDE
     Route: 065
  17. PREDNISOLONE. [Concomitant]
     Active Substance: PREDNISOLONE
  18. LEVAQUIN [Concomitant]
     Active Substance: LEVOFLOXACIN
  19. MEDROL [Concomitant]
     Active Substance: METHYLPREDNISOLONE
     Route: 065
  20. ETOPOSIDE. [Concomitant]
     Active Substance: ETOPOSIDE
     Route: 065
  21. ZINECARD [Concomitant]
     Active Substance: DEXRAZOXANE HYDROCHLORIDE
  22. DECADRON [Concomitant]
     Active Substance: DEXAMETHASONE
     Route: 065
  23. AFRIN [Concomitant]
     Active Substance: OXYMETAZOLINE

REACTIONS (14)
  - Pyrexia [Unknown]
  - Pneumonia pseudomonal [Unknown]
  - Death [Fatal]
  - Upper respiratory tract infection [Unknown]
  - Insomnia [Unknown]
  - Sinusitis [Unknown]
  - Cough [Unknown]
  - Nasopharyngitis [Unknown]
  - Off label use [Unknown]
  - Rhinorrhoea [Unknown]
  - Headache [Recovering/Resolving]
  - Neuropathy peripheral [Recovering/Resolving]
  - Decreased appetite [Unknown]
  - Dizziness [Unknown]

NARRATIVE: CASE EVENT DATE: 20001206
